FAERS Safety Report 5070151-X (Version None)
Quarter: 2006Q3

REPORT INFORMATION
  Report Type: 
  Country: None (occurrence: None)
  Receive Date: 20060802
  Receipt Date: 20060802
  Transmission Date: 20061208
  Serious: Yes (Life-Threatening, Hospitalization)
  Sender: FDA-Public Use
  Company Number: None

PATIENT
  Age: 90 Year
  Sex: Female
  Weight: 54.8852 kg

DRUGS (2)
  1. RISPERIDONE [Suspect]
     Indication: DELUSION
     Dosage: 1 DAILY PO
     Route: 048
     Dates: start: 20060101, end: 20060201
  2. RISPERIDONE [Suspect]
     Indication: DELUSION
     Dosage: 1 DAILY PO
     Route: 048
     Dates: start: 20060401, end: 20060602

REACTIONS (4)
  - APHASIA [None]
  - CEREBROVASCULAR ACCIDENT [None]
  - CYSTITIS [None]
  - HEMIPLEGIA [None]
